FAERS Safety Report 26103057 (Version 1)
Quarter: 2025Q4

REPORT INFORMATION
  Report Type: Spontaneous
  Country: EU (occurrence: EU)
  Receive Date: 20251129
  Receipt Date: 20251129
  Transmission Date: 20260119
  Serious: Yes (Hospitalization, Other)
  Sender: COSETTE PHARMACEUTICALS INC
  Company Number: EU-CDSU_IT-GR-MEN-118471

PATIENT
  Sex: Male
  Weight: 2.35 kg

DRUGS (1)
  1. BENICAR [Suspect]
     Active Substance: OLMESARTAN MEDOXOMIL
     Indication: Foetal exposure during pregnancy
     Route: 064

REACTIONS (11)
  - Renal aplasia [Recovered/Resolved with Sequelae]
  - Pneumothorax [Recovered/Resolved with Sequelae]
  - Pneumoperitoneum [Recovered/Resolved with Sequelae]
  - Haemorrhage intracranial [Recovered/Resolved with Sequelae]
  - Posthaemorrhagic hydrocephalus [Recovered/Resolved with Sequelae]
  - Retinal neovascularisation [Recovered/Resolved with Sequelae]
  - Retinal detachment [Recovered/Resolved with Sequelae]
  - Gastric perforation [Recovered/Resolved with Sequelae]
  - Neonatal hypotension [Recovered/Resolved with Sequelae]
  - Neonatal anuria [Recovered/Resolved with Sequelae]
  - Foetal exposure during pregnancy [Unknown]
